FAERS Safety Report 6231385-1 (Version None)
Quarter: 2009Q2

REPORT INFORMATION
  Report Type: 
  Country: None (occurrence: None)
  Receive Date: 20090611
  Receipt Date: 20090527
  Transmission Date: 20091009
  Serious: Yes (Hospitalization)
  Sender: FDA-Public Use
  Company Number: DSA_33717_2009

PATIENT
  Age: 24 Year
  Sex: Female

DRUGS (1)
  1. DICLOFENAC (DICLOFENAC) [Suspect]
     Indication: PELVIC PAIN
     Dosage: (INTRAMUSCULAR)
     Route: 030

REACTIONS (3)
  - INJECTION SITE NECROSIS [None]
  - NECROTISING FASCIITIS [None]
  - TACHYCARDIA [None]
